FAERS Safety Report 24653619 (Version 1)
Quarter: 2024Q4

REPORT INFORMATION
  Report Type: Spontaneous
  Country: US (occurrence: US)
  Receive Date: 20241122
  Receipt Date: 20241122
  Transmission Date: 20250115
  Serious: No
  Sender: NOVO NORDISK
  Company Number: US-NOVOPROD-1169325

PATIENT
  Age: 64 Year
  Sex: Female

DRUGS (1)
  1. TRESIBA [Suspect]
     Active Substance: INSULIN DEGLUDEC
     Indication: Type 1 diabetes mellitus
     Dosage: 1-3 UNITS AT NIGHT
     Route: 058
     Dates: start: 202309, end: 202310

REACTIONS (9)
  - Chest pain [Recovered/Resolved]
  - Migraine [Recovered/Resolved]
  - Dizziness [Recovered/Resolved]
  - Paraesthesia [Recovered/Resolved]
  - Breast discharge [Recovered/Resolved]
  - Groin pain [Recovered/Resolved]
  - Vision blurred [Recovered/Resolved]
  - Peripheral swelling [Recovered/Resolved]
  - Adnexa uteri pain [Recovered/Resolved]

NARRATIVE: CASE EVENT DATE: 20230901
